FAERS Safety Report 15558511 (Version 1)
Quarter: 2018Q4

REPORT INFORMATION
  Report Type: Report from Study
  Country: None (occurrence: BE)
  Receive Date: 20181028
  Receipt Date: 20181028
  Transmission Date: 20190205
  Serious: Yes (Other)
  Sender: FDA-Public Use
  Company Number: BE-ABBVIE-18S-013-2531006-00

PATIENT
  Age: 79 Year
  Sex: Female

DRUGS (4)
  1. DUODOPA [Suspect]
     Active Substance: CARBIDOPA\LEVODOPA
     Dosage: DOSES CONTINUOUSLY MONITORED AND ADAPTED
     Route: 050
     Dates: start: 20180616, end: 20180719
  2. DUODOPA [Suspect]
     Active Substance: CARBIDOPA\LEVODOPA
     Indication: PARKINSON^S DISEASE
     Dosage: MD=2.5ML, CD=0.9ML/HR DURING 16HRS, ED=0.5ML
     Route: 050
     Dates: start: 20170612, end: 20170616
  3. DUODOPA [Suspect]
     Active Substance: CARBIDOPA\LEVODOPA
     Dosage: MD=2ML, CD=2.1ML/HR DURING 16HRS, ED=1.1ML
     Route: 050
     Dates: start: 20180719, end: 20181022
  4. DUODOPA [Suspect]
     Active Substance: CARBIDOPA\LEVODOPA
     Dosage: MD=2ML, CD=2ML/HR DURING 16HRS, ED=1.1ML
     Route: 050
     Dates: start: 20181022

REACTIONS (3)
  - Cataract [Unknown]
  - Dyskinesia [Unknown]
  - Stress [Unknown]

NARRATIVE: CASE EVENT DATE: 201810
